FAERS Safety Report 9003180 (Version 1)
Quarter: 2013Q1

REPORT INFORMATION
  Report Type: Spontaneous
  Country: US (occurrence: US)
  Receive Date: 20130108
  Receipt Date: 20130108
  Transmission Date: 20140127
  Serious: Yes (Hospitalization)
  Sender: FDA-Public Use
  Company Number: US-ROXANE LABORATORIES, INC.-2013-RO-00014RO

PATIENT
  Age: 68 Year
  Sex: Male

DRUGS (12)
  1. METHADONE [Suspect]
     Route: 048
  2. PREDNISONE [Suspect]
     Indication: PROSTATE CANCER
     Route: 048
  3. ABIRATERONE ACETATE [Suspect]
     Indication: PROSTATE CANCER
     Dosage: 1000 MG
     Route: 048
     Dates: start: 20110603
  4. SUTENT [Suspect]
     Indication: PROSTATE CANCER
     Dosage: 37.5 MG
     Route: 048
     Dates: start: 20120402
  5. ASPIRIN [Suspect]
     Route: 048
  6. LIPITOR [Suspect]
     Route: 048
  7. BENICAR [Suspect]
     Route: 048
  8. BYSTOLIC [Suspect]
     Route: 048
  9. GLYBURIDE [Suspect]
     Route: 048
  10. IMDUR [Suspect]
     Route: 048
  11. NITROGLYCERIN [Suspect]
     Route: 060
  12. NUCYNTA [Suspect]
     Route: 048

REACTIONS (5)
  - Muscular weakness [Recovered/Resolved]
  - Dyspnoea [Unknown]
  - Chest pain [Unknown]
  - Asthenia [Unknown]
  - Mental status changes [Unknown]
